FAERS Safety Report 6800996-4 (Version None)
Quarter: 2010Q2

REPORT INFORMATION
  Report Type: 
  Country: None (occurrence: None)
  Receive Date: 20100629
  Receipt Date: 20100621
  Transmission Date: 20101027
  Serious: Yes (Hospitalization)
  Sender: FDA-Public Use
  Company Number: FR-BAYER-201029671GPV

PATIENT
  Age: 62 Year
  Sex: Male
  Weight: 64 kg

DRUGS (17)
  1. SORAFENIB [Suspect]
     Indication: HEPATIC NEOPLASM MALIGNANT
     Dosage: TOTAL DAILY DOSE: 800 MG
     Route: 048
     Dates: start: 20100108, end: 20100607
  2. PLACEBO [Suspect]
     Indication: HEPATIC NEOPLASM MALIGNANT
     Route: 048
     Dates: start: 20100108, end: 20100608
  3. AVLOCARDYL [Concomitant]
     Indication: PORTAL HYPERTENSION
     Dates: start: 20091208
  4. AVLOCARDYL [Concomitant]
     Dates: start: 20100616
  5. ALDACTONE [Concomitant]
     Indication: HYPERTENSION
     Dates: start: 20091216
  6. ATARAX [Concomitant]
     Indication: PROPHYLAXIS
     Dates: start: 20100104
  7. SUCRALFATE [Concomitant]
     Indication: GASTRITIS
     Dates: start: 20100105, end: 20100128
  8. SUCRALFATE [Concomitant]
     Dates: start: 20100616
  9. RANITIDINE HCL [Concomitant]
     Indication: GASTRITIS
     Dates: start: 20100106
  10. DUPHALAC [Concomitant]
     Indication: CONSTIPATION PROPHYLAXIS
     Dates: start: 20100617
  11. DUPHALAC [Concomitant]
     Dates: start: 20091207, end: 20100128
  12. LOXEN [Concomitant]
     Indication: HYPERTENSION
     Dates: start: 20100618
  13. LOXEN [Concomitant]
     Dates: start: 20100112
  14. HYPERIUM [Concomitant]
     Indication: HYPERTENSION
     Dates: start: 20100410
  15. VENTOLIN [Concomitant]
     Indication: DYSPNOEA
     Route: 055
     Dates: start: 20100512
  16. FORLAX [Concomitant]
     Dates: start: 20100615
  17. CONTRAMAL [Concomitant]
     Route: 048
     Dates: start: 20100615

REACTIONS (1)
  - GENERAL PHYSICAL HEALTH DETERIORATION [None]
